FAERS Safety Report 5658778-5 (Version None)
Quarter: 2008Q1

REPORT INFORMATION
  Report Type: 
  Country: None (occurrence: None)
  Receive Date: 20080310
  Receipt Date: 20070419
  Transmission Date: 20080703
  Serious: Yes (Other)
  Sender: FDA-Public Use
  Company Number: US-BAYER-200711190BCC

PATIENT
  Age: 68 Year
  Sex: Female
  Weight: 91 kg

DRUGS (2)
  1. ALEVE [Suspect]
     Indication: BACK PAIN
     Route: 048
     Dates: start: 20070409, end: 20070418
  2. ATIVAN [Concomitant]

REACTIONS (1)
  - HAEMATOCHEZIA [None]
